FAERS Safety Report 24609072 (Version 3)
Quarter: 2025Q2

REPORT INFORMATION
  Report Type: Spontaneous
  Country: CZ (occurrence: CZ)
  Receive Date: 20241112
  Receipt Date: 20250604
  Transmission Date: 20250716
  Serious: Yes (Life-Threatening, Hospitalization, Other)
  Sender: AUROBINDO
  Company Number: CZ-MLMSERVICE-20241029-PI239053-00044-3

PATIENT
  Age: 67 Year
  Sex: Female
  Weight: 67 kg

DRUGS (22)
  1. ZOLPIDEM TARTRATE [Suspect]
     Active Substance: ZOLPIDEM TARTRATE
     Indication: Product used for unknown indication
     Dosage: 20 MILLIGRAM, ONCE A DAY (10 MG 2 TAB. PER NIGHT)
     Route: 065
  2. ZOLPIDEM TARTRATE [Suspect]
     Active Substance: ZOLPIDEM TARTRATE
     Dosage: 20 MILLIGRAM, ONCE A DAY (10 MG 2 TAB. PER NIGHT)
     Route: 065
  3. ALPRAZOLAM [Suspect]
     Active Substance: ALPRAZOLAM
     Indication: Product used for unknown indication
     Dosage: 1 MILLIGRAM, ONCE A DAY (1 MG 1 TAB. IN THE EVENING)
     Route: 065
  4. BROMAZEPAM [Suspect]
     Active Substance: BROMAZEPAM
     Indication: Product used for unknown indication
     Dosage: 3 MILLIGRAM, 3 TIMES A DAY
     Route: 065
  5. DEXMEDETOMIDINE [Suspect]
     Active Substance: DEXMEDETOMIDINE
     Indication: Sedation
     Route: 065
  6. MIDAZOLAM [Suspect]
     Active Substance: MIDAZOLAM
     Indication: Sedation
     Route: 065
  7. MELPERONE [Suspect]
     Active Substance: MELPERONE
     Indication: Antipsychotic therapy
     Dosage: 25 MILLIGRAM, FOUR TIMES/DAY (1-1-1-2)
     Route: 065
  8. BETAXOLOL [Concomitant]
     Active Substance: BETAXOLOL
     Indication: Product used for unknown indication
     Route: 065
  9. DIOSMIN\HESPERIDIN [Concomitant]
     Active Substance: DIOSMIN\HESPERIDIN
     Indication: Product used for unknown indication
     Route: 065
  10. OLANZAPINE [Concomitant]
     Active Substance: OLANZAPINE
     Indication: Antipsychotic therapy
     Route: 065
  11. DANTROLENE [Concomitant]
     Active Substance: DANTROLENE
     Indication: Neuroleptic malignant syndrome
     Route: 065
  12. NICAMETATE [Concomitant]
     Active Substance: NICAMETATE
     Indication: Product used for unknown indication
     Route: 042
  13. MAGNESIUM [Concomitant]
     Active Substance: MAGNESIUM
     Indication: Product used for unknown indication
     Route: 042
  14. SODIUM BICARBONATE [Concomitant]
     Active Substance: SODIUM BICARBONATE
     Indication: Polyuria
     Route: 065
  15. OXYGEN [Concomitant]
     Active Substance: OXYGEN
     Indication: Product used for unknown indication
     Route: 065
  16. TIAPRIDE [Concomitant]
     Active Substance: TIAPRIDE
     Indication: Product used for unknown indication
     Route: 048
  17. CLONAZEPAM [Concomitant]
     Active Substance: CLONAZEPAM
     Indication: Product used for unknown indication
     Route: 065
  18. AMANTADINE [Concomitant]
     Active Substance: AMANTADINE
     Indication: Product used for unknown indication
     Dosage: 100 MILLIGRAM, TWO TIMES A DAY
     Route: 065
  19. Isolyte [Concomitant]
     Indication: Product used for unknown indication
     Route: 042
  20. METAMIZOLE [Concomitant]
     Active Substance: METAMIZOLE
     Indication: Product used for unknown indication
     Route: 042
  21. DIAZEPAM [Concomitant]
     Active Substance: DIAZEPAM
     Indication: Product used for unknown indication
     Route: 042
  22. SODIUM BICARBONATE [Concomitant]
     Active Substance: SODIUM BICARBONATE
     Indication: Product used for unknown indication
     Route: 065

REACTIONS (10)
  - Delirium [Unknown]
  - Generalised tonic-clonic seizure [Unknown]
  - Loss of consciousness [Unknown]
  - Neuroleptic malignant syndrome [Recovered/Resolved]
  - Drug abuse [Unknown]
  - Muscle rigidity [Unknown]
  - Pyrexia [Unknown]
  - Hypotension [Recovered/Resolved]
  - Postoperative delirium [Unknown]
  - Withdrawal syndrome [Unknown]
